FAERS Safety Report 6114422-4 (Version None)
Quarter: 2009Q1

REPORT INFORMATION
  Report Type: 
  Country: None (occurrence: None)
  Receive Date: 20090313
  Receipt Date: 20090303
  Transmission Date: 20090719
  Serious: Yes (Other)
  Sender: FDA-Public Use
  Company Number: US-ELI_LILLY_AND_COMPANY-US200903002746

PATIENT
  Age: 50 Year
  Sex: Female

DRUGS (3)
  1. BYETTA [Suspect]
     Dosage: UNK, UNKNOWN
  2. CYMBALTA [Concomitant]
     Indication: DIABETIC NEUROPATHY
     Dosage: 60 MG, UNKNOWN
  3. INSULIN [Concomitant]
     Dosage: UNK, UNKNOWN

REACTIONS (1)
  - RETINAL DETACHMENT [None]
